FAERS Safety Report 13499467 (Version 8)
Quarter: 2017Q3

REPORT INFORMATION
  Report Type: Report from Study
  Country: FR (occurrence: FR)
  Receive Date: 20170501
  Receipt Date: 20170816
  Transmission Date: 20171127
  Serious: Yes (Hospitalization, Other)
  Sender: FDA-Public Use
  Company Number: FR-AMGEN-FRANI2017055704

PATIENT
  Age: 51 Year
  Sex: Female
  Weight: 60 kg

DRUGS (37)
  1. ALPRAZOLAM. [Concomitant]
     Active Substance: ALPRAZOLAM
     Dosage: 0.5 MG, (1/2 MORNING, 1/2NOON, 1 EVENING)
  2. BACTRIM [Concomitant]
     Active Substance: SULFAMETHOXAZOLE\TRIMETHOPRIM
     Indication: PSEUDOMONAS INFECTION
  3. DEXAMETHASONE. [Suspect]
     Active Substance: DEXAMETHASONE
     Indication: PLASMA CELL MYELOMA
     Dosage: 40 MG, ON DAY 8, 9, 15, 16, 22
     Route: 065
     Dates: start: 201701, end: 2017
  4. TRANXENE T-TAB [Concomitant]
     Active Substance: CLORAZEPATE DIPOTASSIUM
     Dosage: 10 MG, AS NECESSARY IN THE EVENING
  5. SINGULAIR [Concomitant]
     Active Substance: MONTELUKAST SODIUM
     Dosage: 10 MG, QD, 1-0-0
  6. CARFILZOMIB [Suspect]
     Active Substance: CARFILZOMIB
     Dosage: 56 MG/M2, DAY 01, 02, 08, 09, 15, AND 16. IV
     Route: 042
     Dates: start: 20170601
  7. ALPRAZOLAM. [Concomitant]
     Active Substance: ALPRAZOLAM
     Dosage: 0.5 MG, AS NECESSARY, 1-0-0
  8. BACTRIM [Concomitant]
     Active Substance: SULFAMETHOXAZOLE\TRIMETHOPRIM
     Indication: SEPSIS
     Dosage: UNK, 1-0-0 MONDAYS, WEDNESDAYS AND FRIDAYS
  9. IMOVANE [Concomitant]
     Active Substance: ZOPICLONE
     Dosage: 1 DF, QD, ON GOING TO BED
  10. OXYCODONE [Concomitant]
     Active Substance: OXYCODONE
     Dosage: 20 MG, EVERY 4 HOURS (ORODISPERSIBLE)
  11. PENICILLINE [Concomitant]
     Active Substance: PENICILLIN
     Indication: RESPIRATORY DISTRESS
     Dosage: 100000 UNIT, BID (1 MORNING, 1 EVENING)
     Dates: start: 20170201
  12. EPREX [Concomitant]
     Active Substance: ERYTHROPOIETIN
     Dosage: 30000 UNK, (1 SYRINGE ON FRIDAY MORNING)
     Dates: end: 2017
  13. EPREX [Concomitant]
     Active Substance: ERYTHROPOIETIN
     Dosage: 30000 UNIT, (1 INJECTION ON EVERY WEDNESDAY)
  14. ALPRAZOLAM. [Concomitant]
     Active Substance: ALPRAZOLAM
     Dosage: 0.5 MG, AS NECESSARY IN THE MORNING
     Dates: end: 2017
  15. MOVICOL [Concomitant]
     Active Substance: POLYETHYLENE GLYCOL 3350\POTASSIUM CHLORIDE\SODIUM BICARBONATE\SODIUM CHLORIDE
     Indication: CONSTIPATION
     Dosage: UNK, (2 MORNING IF CONSTIPATED)
  16. PROZAC [Concomitant]
     Active Substance: FLUOXETINE HYDROCHLORIDE
     Dosage: 20 MG, TWO IN THE MORNING
  17. GAVISCON [Concomitant]
     Active Substance: ALUMINUM HYDROXIDE\MAGNESIUM CARBONATE
     Dosage: UNK, AS NECESSARY (ONE IN THE MORNING AND ONE IN EVENING)
  18. ASPIRIN. [Concomitant]
     Active Substance: ASPIRIN
     Dosage: 100 MG, QD (0-1-0)
  19. PROZAC [Concomitant]
     Active Substance: FLUOXETINE HYDROCHLORIDE
     Dosage: 20 MG, QD, 1 EVENING
  20. CETIRIZINE [Concomitant]
     Active Substance: CETIRIZINE HYDROCHLORIDE
     Dosage: 10 MG, QD (IN THE MORNING)
  21. CARFILZOMIB [Suspect]
     Active Substance: CARFILZOMIB
     Indication: PLASMA CELL MYELOMA
     Dosage: 56 MG/M2, DAY 01, 02, 08, 09, 15, AND 16. IV
     Route: 042
     Dates: start: 20170108
  22. CARFILZOMIB [Suspect]
     Active Substance: CARFILZOMIB
     Dosage: UNK
     Route: 042
     Dates: start: 20170309
  23. CARFILZOMIB [Suspect]
     Active Substance: CARFILZOMIB
     Dosage: UNK
     Route: 042
     Dates: start: 20170504
  24. BACTRIM [Concomitant]
     Active Substance: SULFAMETHOXAZOLE\TRIMETHOPRIM
     Indication: RESPIRATORY DISTRESS
     Dosage: 1 DF, TID
  25. ORACILLIN [Concomitant]
     Active Substance: PENICILLIN V BENZATHINE
     Dosage: 1000000 UNK, BID (ONE IN MORNING AND ONE IN EVENING)
  26. FOLIC ACID. [Concomitant]
     Active Substance: FOLIC ACID
     Dosage: 5 MG, 2 TABLETS TUESDAYS AND THURSDAYS
  27. PENICILLINE [Concomitant]
     Active Substance: PENICILLIN
     Indication: PSEUDOMONAL SEPSIS
  28. PENICILLINE [Concomitant]
     Active Substance: PENICILLIN
     Indication: PNEUMONIA CYTOMEGALOVIRAL
  29. CARFILZOMIB [Suspect]
     Active Substance: CARFILZOMIB
     Dosage: 56 MG/M2, DAY 1, 2, 8, 9, 15, 16. (I.E. 90 MG/DAY)
     Route: 042
     Dates: start: 20170330, end: 20170331
  30. DEXAMETHASONE. [Suspect]
     Active Substance: DEXAMETHASONE
     Dosage: 20 MG, DAY 01, 08, 15, AND 22
     Route: 065
     Dates: start: 2017
  31. FILGRASTIM [Concomitant]
     Active Substance: FILGRASTIM
     Indication: NEUTROPHIL COUNT DECREASED
     Dosage: 1 DF, EVERY OTHER DAY IF NEUTROPHILS { 800/CUBIC MILLIMETER (MM3)
  32. ALPRAZOLAM. [Concomitant]
     Active Substance: ALPRAZOLAM
     Dosage: 0.5 MG, QD (AT BEDTIME)
     Dates: start: 2017, end: 2017
  33. EPREX [Concomitant]
     Active Substance: ERYTHROPOIETIN
     Dosage: 1 DF, UNK (ON FRIDAY)
     Route: 042
  34. PRAVASTATIN. [Concomitant]
     Active Substance: PRAVASTATIN
     Indication: BLOOD CHOLESTEROL INCREASED
     Dosage: 40 MG, QD (1 EVENING)
     Dates: start: 201401
  35. BACTRIM [Concomitant]
     Active Substance: SULFAMETHOXAZOLE\TRIMETHOPRIM
     Indication: PNEUMONIA CYTOMEGALOVIRAL
  36. VALACYCLOVIR [Concomitant]
     Active Substance: VALACYCLOVIR HYDROCHLORIDE
     Dosage: 500 MG, BID (IN THE MORNING AND EVENING)
  37. OXYCODONE [Concomitant]
     Active Substance: OXYCODONE
     Dosage: 80 MG, BID (PROLONGED RELEASE 80)

REACTIONS (12)
  - Thrombocytopenia [Unknown]
  - Cytopenia [Unknown]
  - Pseudomonal sepsis [Recovered/Resolved]
  - Asthenia [Recovered/Resolved]
  - Bronchitis [Recovered/Resolved]
  - Pneumonia cytomegaloviral [Recovered/Resolved]
  - Lymphopenia [Unknown]
  - Infusion related reaction [Recovered/Resolved]
  - Anaemia [Unknown]
  - Treatment failure [Unknown]
  - Syncope [Recovered/Resolved]
  - Myelocytosis [Unknown]

NARRATIVE: CASE EVENT DATE: 2017
